FAERS Safety Report 9241566 (Version 3)
Quarter: 2013Q2

REPORT INFORMATION
  Report Type: Spontaneous
  Country: SI (occurrence: SI)
  Receive Date: 20130419
  Receipt Date: 20130627
  Transmission Date: 20140414
  Serious: Yes (Death, Hospitalization)
  Sender: FDA-Public Use
  Company Number: PHHY2013SI038064

PATIENT
  Age: 75 Year
  Sex: Male

DRUGS (11)
  1. TASIGNA [Suspect]
     Indication: CHRONIC MYELOID LEUKAEMIA
     Dosage: 200 MG, BID
     Route: 048
  2. ZINACEF                                 /UNK/ [Concomitant]
     Indication: URINARY TRACT INFECTION
  3. DIFLUCAN [Concomitant]
     Indication: URINARY TRACT INFECTION
  4. TAZOCIN [Concomitant]
     Indication: URINARY TRACT INFECTION
  5. CORYOL [Concomitant]
     Indication: CARDIOVASCULAR DISORDER
  6. PANTOPRAZOLE SODIUM SESQUIHYDRATE [Concomitant]
  7. PORTALAK [Concomitant]
  8. DULCOLAX [Concomitant]
  9. DORETA [Concomitant]
  10. SEVREDOL [Concomitant]
  11. EPUFEN [Concomitant]

REACTIONS (4)
  - Arteriosclerosis [Fatal]
  - Prostate cancer [Fatal]
  - Second primary malignancy [Fatal]
  - Sepsis [Unknown]
